FAERS Safety Report 7210368-9 (Version None)
Quarter: 2011Q1

REPORT INFORMATION
  Report Type: 
  Country: None (occurrence: None)
  Receive Date: 20110105
  Receipt Date: 20101222
  Transmission Date: 20110831
  Serious: Yes (Other)
  Sender: FDA-Public Use
  Company Number: PHFR2010GB01463

PATIENT
  Sex: Female

DRUGS (13)
  1. LANSOPRAZOLE [Concomitant]
  2. CLOZARIL [Suspect]
     Dosage: 150 MG MANE + 250 MG NOCTE
     Route: 048
     Dates: start: 20010701
  3. FERROUS SULFATE TAB [Concomitant]
  4. QUETIAPINE [Concomitant]
     Dosage: 150 MG, QD (NOCTE)
  5. SIMVASTATIN [Concomitant]
  6. METFORMIN [Concomitant]
  7. PROCYCLIDINE HYDROCHLORIDE 2MG TAB [Concomitant]
     Dosage: 5 MG, BID
  8. FLUTICASONE W/SALMETEROL [Concomitant]
  9. FOLIC ACID [Concomitant]
  10. SALBUTAMOL [Concomitant]
  11. FUROSEMIDE [Concomitant]
  12. DIPYRIDAMOLE [Concomitant]
  13. RAMIPRIL [Concomitant]

REACTIONS (22)
  - AGGRESSION [None]
  - ANGER [None]
  - TONGUE PARALYSIS [None]
  - FAECAL INCONTINENCE [None]
  - DECREASED APPETITE [None]
  - ANXIETY [None]
  - TARDIVE DYSKINESIA [None]
  - GAIT DISTURBANCE [None]
  - COGNITIVE DISORDER [None]
  - FRUSTRATION [None]
  - ANKLE FRACTURE [None]
  - SCREAMING [None]
  - ANAEMIA [None]
  - BACK PAIN [None]
  - MOVEMENT DISORDER [None]
  - MOBILITY DECREASED [None]
  - IRRITABILITY [None]
  - SOCIAL AVOIDANT BEHAVIOUR [None]
  - COMMUNICATION DISORDER [None]
  - GRIMACING [None]
  - INCONTINENCE [None]
  - ASTHENIA [None]
